FAERS Safety Report 10694023 (Version 1)
Quarter: 2015Q1

REPORT INFORMATION
  Report Type: Report from Study
  Country: US (occurrence: US)
  Receive Date: 20150106
  Receipt Date: 20150106
  Transmission Date: 20150721
  Serious: Yes (Hospitalization)
  Sender: FDA-Public Use
  Company Number: US-GLAXOSMITHKLINE-US2014GSK045073

PATIENT
  Age: 54 Year
  Sex: Female
  Weight: 130 kg

DRUGS (3)
  1. PACLITAXEL SOLUTION FOR INJECTION [Suspect]
     Active Substance: PACLITAXEL
     Indication: ANAL CANCER METASTATIC
     Dosage: 70 MG/M2, CYC
     Route: 042
     Dates: start: 20141215
  2. PAZOPANIB TABLET [Suspect]
     Active Substance: PAZOPANIB
     Indication: ANAL CANCER METASTATIC
     Dosage: 600 MG, CYC
     Route: 048
     Dates: start: 20141215
  3. CARBOPLATIN. [Suspect]
     Active Substance: CARBOPLATIN
     Indication: ANAL CANCER METASTATIC
     Dosage: UNK, CYC
     Route: 042
     Dates: start: 20141225

REACTIONS (2)
  - Upper respiratory tract infection [Unknown]
  - Febrile neutropenia [Unknown]

NARRATIVE: CASE EVENT DATE: 20141229
